FAERS Safety Report 9252126 (Version 3)
Quarter: 2013Q4

REPORT INFORMATION
  Report Type: Spontaneous
  Country: US (occurrence: US)
  Receive Date: 20130424
  Receipt Date: 20131101
  Transmission Date: 20140711
  Serious: Yes (Death, Hospitalization, Disabling, Other)
  Sender: FDA-Public Use
  Company Number: US-ASTRAZENECA-2013SE27484

PATIENT
  Age: 69 Year
  Sex: Male
  Weight: 124.7 kg

DRUGS (35)
  1. NEXIUM [Suspect]
     Indication: GASTRIC DISORDER
     Dosage: ONCE A DAY
     Route: 048
  2. NEXIUM [Suspect]
     Indication: GASTRIC DISORDER
     Route: 048
     Dates: start: 20090624
  3. TUMS [Concomitant]
  4. ALKA-SELTZER [Concomitant]
  5. MILK OF MAGNESIA [Concomitant]
  6. COREG [Concomitant]
  7. RESTORIL [Concomitant]
  8. GEMFIBROZIL [Concomitant]
  9. BABY ASPIRIN [Concomitant]
  10. PAXIL [Concomitant]
  11. XANAX [Concomitant]
  12. ZAROXOLYN [Concomitant]
  13. LISINOPRIL [Concomitant]
     Route: 048
  14. ALLOPURINOL [Concomitant]
  15. LASIX [Concomitant]
  16. IMDUR [Concomitant]
  17. CLOPIDOGREL [Concomitant]
  18. COMBIVENT [Concomitant]
     Route: 055
  19. PERCOCET [Concomitant]
     Dosage: 1 PER DAY
  20. ROBAXIN [Concomitant]
  21. TRICOR [Concomitant]
  22. TRIAMTERENE [Concomitant]
  23. GLYBURIDE [Concomitant]
  24. PAROXETINE [Concomitant]
  25. ISORBIDE [Concomitant]
  26. HYDROCHLOROTHIAZIDE [Concomitant]
  27. TEMAZEPAM [Concomitant]
     Dates: start: 20090720
  28. ALPRAZOLAM [Concomitant]
     Dates: start: 20091027
  29. HYDROCOD/APAP [Concomitant]
     Dosage: 10-500 MG
  30. PROMETHAZINE [Concomitant]
     Dates: start: 20100610
  31. PREDNISONE [Concomitant]
  32. CARVEDILOL [Concomitant]
     Dates: start: 20100924
  33. NYSTATIN [Concomitant]
     Dates: start: 20101105
  34. FUROSEMIDE [Concomitant]
     Dates: start: 20110812
  35. PRILOSEC [Concomitant]

REACTIONS (19)
  - Respiratory arrest [Fatal]
  - Pneumonia [Fatal]
  - Cardiac failure congestive [Fatal]
  - Spinal fracture [Unknown]
  - Myocardial infarction [Fatal]
  - Lower limb fracture [Unknown]
  - Sternal fracture [Unknown]
  - Joint injury [Unknown]
  - Limb injury [Unknown]
  - Neck injury [Unknown]
  - Skeletal injury [Unknown]
  - Femur fracture [Unknown]
  - Osteoporosis [Unknown]
  - Bone disorder [Unknown]
  - Arthritis [Unknown]
  - Cataract [Unknown]
  - Multiple fractures [Unknown]
  - Spinal osteoarthritis [Unknown]
  - Ankle fracture [Unknown]
